FAERS Safety Report 5584011-9 (Version None)
Quarter: 2008Q1

REPORT INFORMATION
  Report Type: 
  Country: None (occurrence: None)
  Receive Date: 20080104
  Receipt Date: 20080104
  Transmission Date: 20080703
  Serious: Yes (Life-Threatening, Hospitalization)
  Sender: FDA-Public Use
  Company Number: None

PATIENT
  Age: 81 Month
  Sex: Male
  Weight: 20.4119 kg

DRUGS (1)
  1. AGENT COOLBLUE [Suspect]

REACTIONS (1)
  - STAPHYLOCOCCAL SEPSIS [None]
